FAERS Safety Report 23916309 (Version 3)
Quarter: 2025Q1

REPORT INFORMATION
  Report Type: Spontaneous
  Country: US (occurrence: US)
  Receive Date: 20240529
  Receipt Date: 20250106
  Transmission Date: 20250409
  Serious: No
  Sender: PFIZER
  Company Number: US-PFIZER INC-PV202400069195

PATIENT
  Age: 84 Year
  Sex: Male

DRUGS (2)
  1. INLYTA [Suspect]
     Active Substance: AXITINIB
     Indication: Prostate cancer
  2. INLYTA [Suspect]
     Active Substance: AXITINIB
     Dosage: 7 MG, 2X/DAY (TAKE 1 (5MG) EVERY 12 HOURS FOR 30 DAYS, TAKE 2 (1MG) EVERY 12 HOURS FOR 30 DAYS)
     Route: 048

REACTIONS (2)
  - Illness [Unknown]
  - Off label use [Unknown]
